FAERS Safety Report 4316510-1 (Version None)
Quarter: 2004Q1

REPORT INFORMATION
  Report Type: 
  Country: None (occurrence: None)
  Receive Date: 20040312
  Receipt Date: 20020424
  Transmission Date: 20041129
  Serious: Yes (Hospitalization)
  Sender: FDA-Public Use
  Company Number: WAES 0204USA02770

PATIENT
  Age: 72 Year
  Sex: Female

DRUGS (2)
  1. VIOXX [Suspect]
     Route: 048
  2. LITHIUM CARBONATE [Suspect]
     Route: 048

REACTIONS (7)
  - ASTERIXIS [None]
  - ATAXIA [None]
  - DEHYDRATION [None]
  - DIZZINESS [None]
  - DRUG INTERACTION [None]
  - DRUG LEVEL INCREASED [None]
  - NYSTAGMUS [None]
